FAERS Safety Report 22037942 (Version 2)
Quarter: 2023Q1

REPORT INFORMATION
  Report Type: Report from Study
  Country: DE (occurrence: DE)
  Receive Date: 20230227
  Receipt Date: 20230331
  Transmission Date: 20230418
  Serious: Yes (Hospitalization)
  Sender: FDA-Public Use
  Company Number: DE-SA-2023SA057438

PATIENT
  Age: 63 Year
  Sex: Female

DRUGS (1)
  1. DOCETAXEL [Suspect]
     Active Substance: DOCETAXEL
     Indication: Non-small cell lung cancer
     Dosage: 75 MG/M2 , INFUSION RATE: 115 MG/H
     Route: 041
     Dates: start: 20201009, end: 20201009

REACTIONS (1)
  - Neutropenic infection [Recovered/Resolved]

NARRATIVE: CASE EVENT DATE: 20201017
